FAERS Safety Report 5551973-5 (Version None)
Quarter: 2007Q4

REPORT INFORMATION
  Report Type: 
  Country: None (occurrence: None)
  Receive Date: 20071129
  Receipt Date: 20070612
  Transmission Date: 20080405
  Serious: Yes (Hospitalization)
  Sender: FDA-Public Use
  Company Number: US200703002089

PATIENT
  Age: 94 Year
  Sex: Male
  Weight: 110.2 kg

DRUGS (1)
  1. ZYPREXA [Suspect]
     Dosage: 2.5 MG,
     Dates: start: 20040306, end: 20050315

REACTIONS (3)
  - CARDIAC FAILURE CONGESTIVE [None]
  - OBESITY [None]
  - TYPE 2 DIABETES MELLITUS [None]
